FAERS Safety Report 6097542-2 (Version None)
Quarter: 2009Q1

REPORT INFORMATION
  Report Type: 
  Country: None (occurrence: None)
  Receive Date: 20090227
  Receipt Date: 20090217
  Transmission Date: 20090719
  Serious: No
  Sender: FDA-Public Use
  Company Number: A0750975A

PATIENT
  Sex: Female

DRUGS (4)
  1. IMITREX [Suspect]
     Indication: MIGRAINE
     Route: 058
  2. GSK AUTOINJECTOR [Suspect]
     Indication: MIGRAINE
     Route: 058
  3. SEROTONIN [Concomitant]
  4. TRYPTAN [Concomitant]

REACTIONS (7)
  - DECREASED ACTIVITY [None]
  - DEVICE MALFUNCTION [None]
  - FATIGUE [None]
  - MUSCULAR WEAKNESS [None]
  - PAIN [None]
  - PRODUCT QUALITY ISSUE [None]
  - WEIGHT INCREASED [None]
